FAERS Safety Report 5269956-1 (Version None)
Quarter: 2007Q1

REPORT INFORMATION
  Report Type: 
  Country: None (occurrence: None)
  Receive Date: 20061212
  Receipt Date: 20051220
  Transmission Date: 20070707
  Serious: No
  Sender: FDA-Public Use
  Company Number: RS005689-USA

PATIENT
  Sex: Female

DRUGS (2)
  1. ACIPHEX [Suspect]
     Indication: ABDOMINAL DISCOMFORT
     Dosage: 20 MG, UNK; ORAL
     Route: 048
     Dates: start: 20051201, end: 20051201
  2. ACIPHEX [Suspect]
     Indication: ABDOMINAL DISCOMFORT
     Dosage: 20 MG, UNK; ORAL
     Route: 048
     Dates: start: 20051215, end: 20051220

REACTIONS (2)
  - AGEUSIA [None]
  - HYPERSENSITIVITY [None]
